FAERS Safety Report 6822358-6 (Version None)
Quarter: 2010Q3

REPORT INFORMATION
  Report Type: 
  Country: None (occurrence: None)
  Receive Date: 20100708
  Receipt Date: 20100625
  Transmission Date: 20110219
  Serious: Yes (Other)
  Sender: FDA-Public Use
  Company Number: PHHY2010FR42613

PATIENT
  Age: 70 Year
  Sex: Female

DRUGS (2)
  1. RASILEZ [Suspect]
     Dosage: 150 MG, UNK
  2. RASILEZ [Suspect]
     Dosage: 300 MG, UNK

REACTIONS (7)
  - BLOOD PRESSURE INADEQUATELY CONTROLLED [None]
  - COUGH [None]
  - DYSPNOEA [None]
  - LYMPHOEDEMA [None]
  - OEDEMA PERIPHERAL [None]
  - PHARYNGEAL OEDEMA [None]
  - SWOLLEN TONGUE [None]
